FAERS Safety Report 10633759 (Version 1)
Quarter: 2014Q4

REPORT INFORMATION
  Report Type: Spontaneous
  Country: US (occurrence: None)
  Receive Date: 20141203
  Receipt Date: 20141203
  Transmission Date: 20150529
  Serious: Yes (Other)
  Sender: FDA-Public Use
  Company Number: COR_00169_2014

PATIENT
  Age: 14 Month
  Sex: Male

DRUGS (2)
  1. CARBOPLATIN. [Suspect]
     Active Substance: CARBOPLATIN
     Indication: RETINOBLASTOMA
     Dosage: [DILUTED IN 30 ML OF SALINE, PULSATILE, MANUAL, NON-LAMINATED TECHNIQUE OVER 30 MIN] INTRA-ARTERIAL)
  2. MELPHALAN [Suspect]
     Active Substance: MELPHALAN
     Indication: RETINOBLASTOMA
     Dosage: [DILUTED IN 30 ML OF SALINE, PULSATILE, NON-LAMINATED, MANUAL TECHNIQUE OVER 30 MIN] INTRA-ARTERIAL)

REACTIONS (1)
  - Retinal artery occlusion [None]
